FAERS Safety Report 4712128-7 (Version None)
Quarter: 2005Q3

REPORT INFORMATION
  Report Type: 
  Country: None (occurrence: None)
  Receive Date: 20050712
  Receipt Date: 20050705
  Transmission Date: 20060218
  Serious: Yes (Other)
  Sender: FDA-Public Use
  Company Number: 200515607US

PATIENT
  Sex: Female

DRUGS (3)
  1. LANTUS [Suspect]
     Indication: DIABETES MELLITUS
     Dosage: DOSE UNIT: UNITS
     Dates: start: 20050705, end: 20050705
  2. DEPAKOTE [Concomitant]
     Dosage: DOSE: UNK
  3. NEXIUM [Concomitant]
     Dosage: DOSE: UNK

REACTIONS (10)
  - APPLICATION SITE PARAESTHESIA [None]
  - BLOOD GLUCOSE INCREASED [None]
  - DYSPHONIA [None]
  - FEELING ABNORMAL [None]
  - FEELING COLD [None]
  - INJECTION SITE REACTION [None]
  - PAIN [None]
  - PHARYNGOLARYNGEAL PAIN [None]
  - SWELLING [None]
  - VISION BLURRED [None]
